FAERS Safety Report 4569579-3 (Version None)
Quarter: 2005Q1

REPORT INFORMATION
  Report Type: 
  Country: None (occurrence: None)
  Receive Date: 20050201
  Receipt Date: 20050127
  Transmission Date: 20050727
  Serious: Yes (Other)
  Sender: FDA-Public Use
  Company Number: 200510074GDS

PATIENT
  Age: 83 Year
  Sex: Male

DRUGS (9)
  1. MOXIFLOXACIN [Suspect]
     Dosage: 400 MG TOTAL DAILY ORAL
     Route: 048
  2. WARFARIN SODIUM [Suspect]
     Dosage: 4 MG TOTAL DAILY
  3. PREDNISONE [Concomitant]
  4. THEOPHYLLINE [Concomitant]
  5. VERAPAMIL [Concomitant]
  6. ALBUTEROL [Concomitant]
  7. IPATROPIUM BROMIDE [Concomitant]
  8. FLUTICASONE PROPIONATE [Concomitant]
  9. OXAZEPAM [Concomitant]

REACTIONS (8)
  - BRONCHITIS CHRONIC [None]
  - CHRONIC OBSTRUCTIVE PULMONARY DISEASE [None]
  - DRUG INTERACTION [None]
  - HAEMATEMESIS [None]
  - HAEMOGLOBIN DECREASED [None]
  - INTERNATIONAL NORMALISED RATIO INCREASED [None]
  - PNEUMONIA BACTERIAL [None]
  - UPPER GASTROINTESTINAL HAEMORRHAGE [None]
